FAERS Safety Report 18166698 (Version 1)
Quarter: 2020Q3

REPORT INFORMATION
  Report Type: Not Available
  Country: JP (occurrence: JP)
  Receive Date: 20200819
  Receipt Date: 20200819
  Transmission Date: 20201103
  Serious: Yes (Hospitalization)
  Sender: FDA-Public Use
  Company Number: JP-RECORDATI RARE DISEASES INC.-JP-R13005-20-00102

PATIENT
  Sex: Female
  Weight: .83 kg

DRUGS (15)
  1. NEOPROFEN [Suspect]
     Active Substance: IBUPROFEN LYSINE
     Route: 042
     Dates: start: 20191221, end: 20191221
  2. VANCOMYCIN [Concomitant]
     Active Substance: VANCOMYCIN
     Indication: PRODUCT USED FOR UNKNOWN INDICATION
     Route: 065
     Dates: start: 20200110, end: 20200123
  3. VICCILLIN [Concomitant]
     Active Substance: AMPICILLIN
     Indication: PRODUCT USED FOR UNKNOWN INDICATION
     Route: 065
     Dates: start: 20191218, end: 20191220
  4. FUNGUARD [Concomitant]
     Active Substance: MICAFUNGIN SODIUM
     Indication: PRODUCT USED FOR UNKNOWN INDICATION
     Route: 065
     Dates: start: 20191218, end: 20200108
  5. RESPIA [Concomitant]
     Active Substance: CAFFEINE
     Indication: PRODUCT USED FOR UNKNOWN INDICATION
     Route: 065
     Dates: start: 20191220, end: 20200120
  6. INOVAN [Concomitant]
     Active Substance: DOPAMINE HYDROCHLORIDE
     Indication: PRODUCT USED FOR UNKNOWN INDICATION
     Route: 065
     Dates: start: 20191218, end: 20200123
  7. MEROPENEM. [Concomitant]
     Active Substance: MEROPENEM
     Indication: PRODUCT USED FOR UNKNOWN INDICATION
     Route: 065
     Dates: start: 20200111, end: 20200114
  8. CEFEPIME [Concomitant]
     Active Substance: CEFEPIME HYDROCHLORIDE
     Indication: PRODUCT USED FOR UNKNOWN INDICATION
     Route: 065
     Dates: start: 20200114, end: 20200203
  9. NEOPROFEN [Suspect]
     Active Substance: IBUPROFEN LYSINE
     Route: 042
     Dates: start: 20191222, end: 20191222
  10. NEOPROFEN [Suspect]
     Active Substance: IBUPROFEN LYSINE
     Route: 042
     Dates: start: 20200114, end: 20200114
  11. NEOPROFEN [Suspect]
     Active Substance: IBUPROFEN LYSINE
     Route: 042
     Dates: start: 20200115, end: 20200115
  12. NEOPROFEN [Suspect]
     Active Substance: IBUPROFEN LYSINE
     Indication: PATENT DUCTUS ARTERIOSUS
     Route: 042
     Dates: start: 20191220, end: 20191220
  13. EPOETIN ALFA BS [Concomitant]
     Active Substance: ERYTHROPOIETIN
     Indication: PRODUCT USED FOR UNKNOWN INDICATION
     Route: 065
     Dates: start: 20200114, end: 20200310
  14. NEOPROFEN [Suspect]
     Active Substance: IBUPROFEN LYSINE
     Route: 042
     Dates: start: 20200116, end: 20200116
  15. DOBUTREX [Concomitant]
     Active Substance: DOBUTAMINE HYDROCHLORIDE
     Indication: PRODUCT USED FOR UNKNOWN INDICATION
     Route: 065
     Dates: start: 20191218, end: 20200123

REACTIONS (3)
  - Blood sodium decreased [Recovering/Resolving]
  - Blood creatinine increased [Recovering/Resolving]
  - Urine output decreased [Recovering/Resolving]

NARRATIVE: CASE EVENT DATE: 20191222
